FAERS Safety Report 16255807 (Version 2)
Quarter: 2019Q2

REPORT INFORMATION
  Report Type: Spontaneous
  Country: FR (occurrence: FR)
  Receive Date: 20190430
  Receipt Date: 20190503
  Transmission Date: 20190711
  Serious: Yes (Hospitalization)
  Sender: FDA-Public Use
  Company Number: FR-TEVA-2019-FR-1044782

PATIENT
  Age: 82 Year
  Sex: Female

DRUGS (3)
  1. DORZOLAMIDE (CHLORHYDRATE DE) [Suspect]
     Active Substance: DORZOLAMIDE
     Indication: GLAUCOMA
     Route: 047
     Dates: start: 201811, end: 20190206
  2. COSIDIME 20 MG/ML + 5 MG/ML, COLLYRE EN SOLUTION [Suspect]
     Active Substance: DORZOLAMIDE HYDROCHLORIDE\TIMOLOL MALEATE
     Indication: GLAUCOMA
     Dosage: 2 DOSAGE FORMS DAILY;
     Route: 047
     Dates: start: 20190206, end: 20190321
  3. STERDEX, POMMADE OPHTALMIQUE EN R?CIPIENT UNIDOSE [Suspect]
     Active Substance: DEXAMETHASONE\OXYTETRACYCLINE
     Indication: EYE INFECTION
     Route: 047
     Dates: start: 201811, end: 20190321

REACTIONS (2)
  - Condition aggravated [Recovered/Resolved]
  - Eczema eyelids [Recovered/Resolved]

NARRATIVE: CASE EVENT DATE: 201902
